FAERS Safety Report 6684108-6 (Version None)
Quarter: 2010Q2

REPORT INFORMATION
  Report Type: 
  Country: None (occurrence: None)
  Receive Date: 20100416
  Receipt Date: 20100406
  Transmission Date: 20101027
  Serious: Yes (Hospitalization, Other)
  Sender: FDA-Public Use
  Company Number: PHHO2004JP16325

PATIENT
  Sex: Female
  Weight: 50 kg

DRUGS (17)
  1. GLEEVEC [Suspect]
     Indication: GASTROINTESTINAL STROMAL TUMOUR
     Dosage: 400 MG, QD
     Route: 048
     Dates: start: 20031007, end: 20031016
  2. GLEEVEC [Suspect]
     Dosage: NO TREATMENT
     Dates: start: 20031017, end: 20031104
  3. GLEEVEC [Suspect]
     Dosage: 200 MG, QD
     Route: 048
     Dates: start: 20031105, end: 20031226
  4. GLEEVEC [Suspect]
     Dosage: NO TREATMENT
     Dates: start: 20031227, end: 20040216
  5. GLEEVEC [Suspect]
     Dosage: 100 MG, QD
     Route: 048
     Dates: start: 20040217, end: 20040227
  6. GLEEVEC [Suspect]
     Dosage: UNK, NO TREATMENT
     Dates: start: 20040228, end: 20040531
  7. GLEEVEC [Suspect]
     Dosage: 10 MG, QD
     Route: 048
     Dates: start: 20040601, end: 20040621
  8. GLEEVEC [Suspect]
     Dosage: 50 MG, QD
     Route: 048
     Dates: start: 20040622, end: 20040628
  9. GLEEVEC [Suspect]
     Dosage: 100 MG, QD
     Route: 048
     Dates: start: 20040629, end: 20040801
  10. GLEEVEC [Suspect]
     Dosage: UNK, NO TREATMENT
     Dates: start: 20040802, end: 20040808
  11. GLEEVEC [Suspect]
     Dosage: 50 MG, QD
     Route: 048
     Dates: start: 20040809, end: 20040816
  12. GLEEVEC [Suspect]
     Dosage: UNK, NO TREATMENT
     Dates: start: 20040817, end: 20040920
  13. GLEEVEC [Suspect]
     Dosage: 10 MG, QD
     Route: 048
     Dates: start: 20040921, end: 20041004
  14. GLEEVEC [Suspect]
     Dosage: 20 MG, QD
     Route: 048
     Dates: start: 20041005
  15. GLEEVEC [Suspect]
     Dosage: 100 MG
     Route: 048
     Dates: start: 20071007, end: 20080506
  16. GLEEVEC [Suspect]
     Dosage: 100 MG
     Route: 048
     Dates: start: 20080611
  17. ALLELOCK [Concomitant]
     Indication: RASH
     Dosage: 10 MG
     Route: 048
     Dates: start: 20040720

REACTIONS (10)
  - ALANINE AMINOTRANSFERASE INCREASED [None]
  - ASPARTATE AMINOTRANSFERASE INCREASED [None]
  - DUODENAL ULCER [None]
  - EOSINOPHILIA [None]
  - GASTROINTESTINAL STROMAL TUMOUR [None]
  - HIGH FREQUENCY ABLATION [None]
  - MALIGNANT NEOPLASM PROGRESSION [None]
  - PLATELET COUNT DECREASED [None]
  - RASH [None]
  - WHITE BLOOD CELL COUNT DECREASED [None]
